FAERS Safety Report 10236165 (Version 1)
Quarter: 2014Q2

REPORT INFORMATION
  Report Type: Spontaneous
  Country: US (occurrence: US)
  Receive Date: 20140613
  Receipt Date: 20140613
  Transmission Date: 20141212
  Serious: No
  Sender: FDA-Public Use
  Company Number: US-BAYER-2014-087832

PATIENT
  Age: 66 Year
  Sex: Female

DRUGS (1)
  1. ULTRAVIST [Suspect]
     Indication: UROGRAM
     Dosage: 70 ML, ONCE
     Route: 042
     Dates: start: 20140609, end: 20140609

REACTIONS (3)
  - Sneezing [Not Recovered/Not Resolved]
  - Lip pruritus [Not Recovered/Not Resolved]
  - Dysphagia [Not Recovered/Not Resolved]
